FAERS Safety Report 4429327-4 (Version None)
Quarter: 2004Q3

REPORT INFORMATION
  Report Type: 
  Country: None (occurrence: None)
  Receive Date: 20040816
  Receipt Date: 20040729
  Transmission Date: 20050211
  Serious: Yes (Hospitalization)
  Sender: FDA-Public Use
  Company Number: 196455

PATIENT
  Age: 18 Year
  Sex: Female
  Weight: 90.7194 kg

DRUGS (8)
  1. AVONEX [Suspect]
     Indication: MULTIPLE SCLEROSIS
     Dosage: 30 MCG QE IM
     Route: 030
     Dates: start: 19970101, end: 20000101
  2. AVONEX [Suspect]
     Indication: MULTIPLE SCLEROSIS
     Dosage: 30 MCG QW IM
     Route: 030
     Dates: start: 20020101, end: 20030101
  3. AVONEX [Suspect]
     Indication: MULTIPLE SCLEROSIS
     Dosage: 30 MCG QW IM
     Route: 030
     Dates: start: 20030101
  4. TIZANIDINE HCL [Concomitant]
  5. ZOLOFT [Concomitant]
  6. GABITRIL [Concomitant]
  7. BACLOFEN [Concomitant]
  8. PREDNISONE [Concomitant]

REACTIONS (10)
  - BACK PAIN [None]
  - BLOOD CHOLESTEROL INCREASED [None]
  - DEPRESSION [None]
  - DISEASE PROGRESSION [None]
  - DRUG LEVEL BELOW THERAPEUTIC [None]
  - MULTIPLE SCLEROSIS [None]
  - PAIN IN EXTREMITY [None]
  - PNEUMONIA [None]
  - PULMONARY THROMBOSIS [None]
  - THROMBOSIS [None]
